FAERS Safety Report 13813481 (Version 4)
Quarter: 2017Q4

REPORT INFORMATION
  Report Type: Report from Study
  Country: US (occurrence: US)
  Receive Date: 20170730
  Receipt Date: 20171006
  Transmission Date: 20180320
  Serious: Yes (Other)
  Sender: FDA-Public Use
  Company Number: PHEH2017US023561

PATIENT
  Age: 39 Year
  Sex: Male
  Weight: 103 kg

DRUGS (1)
  1. GILENYA [Suspect]
     Active Substance: FINGOLIMOD HYDROCHLORIDE
     Indication: RELAPSING-REMITTING MULTIPLE SCLEROSIS
     Dosage: 0.5 MG, QD
     Route: 048
     Dates: start: 20170615

REACTIONS (8)
  - Multiple sclerosis relapse [Unknown]
  - Amnesia [Recovering/Resolving]
  - Visual field defect [Unknown]
  - Optic neuritis [Recovered/Resolved with Sequelae]
  - Headache [Unknown]
  - Blindness unilateral [Recovering/Resolving]
  - Visual acuity reduced [Unknown]
  - Seizure [Unknown]

NARRATIVE: CASE EVENT DATE: 20170615
